FAERS Safety Report 6736052-3 (Version None)
Quarter: 2010Q2

REPORT INFORMATION
  Report Type: 
  Country: None (occurrence: None)
  Receive Date: 20100521
  Receipt Date: 20100511
  Transmission Date: 20101027
  Serious: Yes (Other)
  Sender: FDA-Public Use
  Company Number: FR-PFIZER INC-2010051003

PATIENT
  Age: 45 Year
  Sex: Male

DRUGS (3)
  1. ATARAX [Suspect]
     Indication: URTICARIA PHYSICAL
     Dosage: 25 MG DAILY
     Route: 048
     Dates: start: 20100215, end: 20100415
  2. ATARAX [Suspect]
     Dosage: 12.5 MG, UNK
     Route: 048
     Dates: start: 20100215, end: 20100415
  3. EBASTINE [Suspect]
     Indication: URTICARIA PHYSICAL
     Dosage: 10 MG, UNK
     Route: 048
     Dates: start: 20100215, end: 20100415

REACTIONS (3)
  - GLARE [None]
  - HEADACHE [None]
  - VISION BLURRED [None]
